FAERS Safety Report 10192963 (Version 2)
Quarter: 2014Q2

REPORT INFORMATION
  Report Type: Spontaneous
  Country: US (occurrence: US)
  Receive Date: 20140523
  Receipt Date: 20140606
  Transmission Date: 20141212
  Serious: No
  Sender: FDA-Public Use
  Company Number: US-TEVA-480447USA

PATIENT
  Sex: Male
  Weight: 124.4 kg

DRUGS (3)
  1. NUVIGIL [Suspect]
     Indication: SOMNOLENCE
     Dosage: 100MG  AM AND 200 MG NOON DAILY
     Route: 048
     Dates: start: 2004
  2. METOPROLOL [Concomitant]
     Indication: HYPERTENSION
     Dosage: 2 TABS BID
  3. MULTIVITAMIN [Concomitant]

REACTIONS (5)
  - Drug ineffective [Unknown]
  - Psoriasis [Unknown]
  - Dry skin [Recovered/Resolved]
  - Skin fissures [Recovered/Resolved]
  - Skin haemorrhage [Recovered/Resolved]
